FAERS Safety Report 24835950 (Version 1)
Quarter: 2025Q1

REPORT INFORMATION
  Report Type: Spontaneous
  Country: US (occurrence: US)
  Receive Date: 20250113
  Receipt Date: 20250113
  Transmission Date: 20250408
  Serious: No
  Sender: SANOFI AVENTIS
  Company Number: US-SA-2025SA007995

PATIENT
  Age: 60 Year
  Sex: Male
  Weight: 78.64 kg

DRUGS (10)
  1. DUPIXENT [Suspect]
     Active Substance: DUPILUMAB
     Indication: Dermatitis atopic
     Dosage: 300 MG, QOW
     Route: 058
     Dates: start: 20180226
  2. JOJOBA OIL [Concomitant]
     Active Substance: JOJOBA OIL
  3. ALLEGRA ALLERGY [Concomitant]
     Active Substance: FEXOFENADINE HYDROCHLORIDE
  4. IRON [Concomitant]
     Active Substance: IRON
  5. TACROLIMUS [Concomitant]
     Active Substance: TACROLIMUS
  6. TRIAMCINOLONE ACETONIDE [Concomitant]
     Active Substance: TRIAMCINOLONE ACETONIDE
  7. FLUOCINOLONE ACETONIDE [Concomitant]
     Active Substance: FLUOCINOLONE ACETONIDE
  8. GABAPENTIN [Concomitant]
     Active Substance: GABAPENTIN
  9. HYDROXYZINE HYDROCHLORIDE [Concomitant]
     Active Substance: HYDROXYZINE HYDROCHLORIDE
  10. ALLEGRA D-12 HOUR [Concomitant]
     Active Substance: FEXOFENADINE HYDROCHLORIDE\PSEUDOEPHEDRINE HYDROCHLORIDE

REACTIONS (3)
  - Dermatitis atopic [Recovered/Resolved]
  - Dry skin [Unknown]
  - Extra dose administered [Unknown]

NARRATIVE: CASE EVENT DATE: 20230101
